FAERS Safety Report 6692031-6 (Version None)
Quarter: 2010Q2

REPORT INFORMATION
  Report Type: 
  Country: None (occurrence: None)
  Receive Date: 20100419
  Receipt Date: 20100405
  Transmission Date: 20101027
  Serious: Yes (Hospitalization)
  Sender: FDA-Public Use
  Company Number: 230426J08CAN

PATIENT
  Age: 51 Year
  Sex: Male

DRUGS (10)
  1. REBIF [Suspect]
     Indication: MULTIPLE SCLEROSIS
     Dates: start: 20080105
  2. REBIF [Suspect]
     Indication: RELAPSING-REMITTING MULTIPLE SCLEROSIS
     Dates: start: 20080105
  3. TYLENOL (COTYLENOL) [Concomitant]
  4. ASPIRIN [Concomitant]
  5. PLAVIX [Concomitant]
  6. PERIOT (PERIOTRET) (METRONIDAZOLE)(METRONIDAZOLE) [Concomitant]
  7. RAMIPRIL [Concomitant]
  8. LIPITOR [Concomitant]
  9. WARFARIN SODIUM [Concomitant]
  10. METAPROL (METAPREL) (ORCIPRENALINE SULFATE) [Concomitant]

REACTIONS (4)
  - FEELING COLD [None]
  - MYOCARDIAL INFARCTION [None]
  - PAIN IN EXTREMITY [None]
  - TRIGEMINAL NEURALGIA [None]
